FAERS Safety Report 6804976-4 (Version None)
Quarter: 2010Q2

REPORT INFORMATION
  Report Type: 
  Country: None (occurrence: None)
  Receive Date: 20100628
  Receipt Date: 20070723
  Transmission Date: 20101027
  Serious: No
  Sender: FDA-Public Use
  Company Number: US-PFIZER INC-2007035341

PATIENT
  Sex: Male
  Weight: 88.45 kg

DRUGS (3)
  1. XALATAN [Suspect]
     Indication: GLAUCOMA
     Dates: start: 20060101
  2. ALEVE (CAPLET) [Concomitant]
  3. TYLENOL [Concomitant]

REACTIONS (2)
  - EYE IRRITATION [None]
  - LACRIMATION INCREASED [None]
